FAERS Safety Report 7578451-6 (Version None)
Quarter: 2011Q2

REPORT INFORMATION
  Report Type: 
  Country: None (occurrence: None)
  Receive Date: 20110628
  Receipt Date: 20110622
  Transmission Date: 20111010
  Serious: Yes (Other)
  Sender: FDA-Public Use
  Company Number: NL-ABBOTT-11P-114-0728515-00

PATIENT
  Sex: Male
  Weight: 92 kg

DRUGS (8)
  1. MEBEVERINE [Concomitant]
     Indication: CROHN'S DISEASE
     Route: 048
     Dates: start: 20081001
  2. RANITIDINE [Concomitant]
     Indication: NAUSEA
  3. DICLOFENAC/MISOPROSTOL SR [Concomitant]
     Indication: CROHN'S DISEASE
     Dosage: 50/200 MCG
     Route: 048
     Dates: start: 20081001
  4. PERINDOPRIL ERBUMINE [Concomitant]
     Indication: HYPERTENSION
     Route: 048
     Dates: start: 19900101
  5. RANITIDINE [Concomitant]
     Indication: DYSPEPSIA
     Route: 048
     Dates: start: 20080101
  6. HUMIRA [Suspect]
     Indication: CROHN'S DISEASE
     Route: 058
     Dates: start: 20101101, end: 20110613
  7. BISOPROLOL [Concomitant]
     Indication: HYPERTENSION
     Route: 048
     Dates: start: 20100601
  8. HYDROCHLOROTHIAZIDE [Concomitant]
     Indication: HYPERTENSION
     Route: 048
     Dates: start: 20030101

REACTIONS (7)
  - VISION BLURRED [None]
  - DRY SKIN [None]
  - NERVE INJURY [None]
  - PARAESTHESIA ORAL [None]
  - PARAESTHESIA [None]
  - VISUAL IMPAIRMENT [None]
  - ARTHRALGIA [None]
